FAERS Safety Report 9193859 (Version 2)
Quarter: 2014Q1

REPORT INFORMATION
  Report Type: Spontaneous
  Country: US (occurrence: US)
  Receive Date: 20130327
  Receipt Date: 20140123
  Transmission Date: 20141002
  Serious: Yes (Other)
  Sender: FDA-Public Use
  Company Number: US-PFIZER INC-2013095661

PATIENT
  Age: 33 Year
  Sex: Female

DRUGS (1)
  1. DIFLUCAN [Suspect]
     Dosage: UNK

REACTIONS (2)
  - Stevens-Johnson syndrome [Unknown]
  - Drug hypersensitivity [Unknown]
